FAERS Safety Report 12976937 (Version 2)
Quarter: 2016Q4

REPORT INFORMATION
  Report Type: Report from Study
  Country: US (occurrence: US)
  Receive Date: 20161128
  Receipt Date: 20161222
  Transmission Date: 20170207
  Serious: Yes (Hospitalization, Other)
  Sender: FDA-Public Use
  Company Number: PHEH2016US030821

PATIENT
  Age: 30 Year
  Sex: Male
  Weight: 62.6 kg

DRUGS (1)
  1. GILENYA [Suspect]
     Active Substance: FINGOLIMOD HYDROCHLORIDE
     Indication: MULTIPLE SCLEROSIS
     Dosage: 0.5 MG, QD
     Route: 048
     Dates: start: 20161118, end: 20161118

REACTIONS (5)
  - Electrocardiogram QT prolonged [Recovered/Resolved]
  - Fatigue [Unknown]
  - Electrocardiogram abnormal [Recovered/Resolved]
  - Arrhythmia [Unknown]
  - Sinus bradycardia [Unknown]

NARRATIVE: CASE EVENT DATE: 20161118
